FAERS Safety Report 13192922 (Version 1)
Quarter: 2017Q1

REPORT INFORMATION
  Report Type: Spontaneous
  Country: US (occurrence: US)
  Receive Date: 20170207
  Receipt Date: 20170207
  Transmission Date: 20170428
  Serious: Yes (Other)
  Sender: FDA-Public Use
  Company Number: US-AMGEN-USASP2017019526

PATIENT

DRUGS (1)
  1. PROLIA [Suspect]
     Active Substance: DENOSUMAB
     Indication: PRODUCT USED FOR UNKNOWN INDICATION
     Route: 065

REACTIONS (10)
  - Vertigo [Unknown]
  - Muscle spasms [Unknown]
  - Feeling abnormal [Unknown]
  - Migraine [Unknown]
  - Abasia [Unknown]
  - Influenza like illness [Unknown]
  - Back pain [Unknown]
  - Hypotension [Unknown]
  - Dry skin [Unknown]
  - Arthralgia [Unknown]
